FAERS Safety Report 10971121 (Version 1)
Quarter: 2015Q1

REPORT INFORMATION
  Report Type: Report from Study
  Country: US (occurrence: US)
  Receive Date: 20150331
  Receipt Date: 20150331
  Transmission Date: 20150721
  Serious: Yes (Death)
  Sender: FDA-Public Use
  Company Number: PHEH2015US006053

PATIENT
  Sex: Female

DRUGS (1)
  1. EXJADE [Suspect]
     Active Substance: DEFERASIROX
     Indication: IRON OVERLOAD
     Dosage: 3 DF, QD (DISSOLVED 3 TAB IN 8OZ OF WATER OR JUICE)
     Route: 048

REACTIONS (2)
  - Cerebrovascular accident [Fatal]
  - Sickle cell anaemia [Fatal]
